FAERS Safety Report 16584406 (Version 1)
Quarter: 2019Q3

REPORT INFORMATION
  Report Type: Spontaneous
  Country: US (occurrence: US)
  Receive Date: 20190717
  Receipt Date: 20190717
  Transmission Date: 20191004
  Serious: Yes (Disabling)
  Sender: FDA-Public Use
  Company Number: US-AMREGENT-20191453

PATIENT
  Sex: Female

DRUGS (1)
  1. INJECTAFER [Suspect]
     Active Substance: FERRIC CARBOXYMALTOSE
     Dosage: UNKNOWN; FIRST DOSE
     Route: 051
     Dates: start: 20181008, end: 20181008

REACTIONS (9)
  - Product quality issue [Unknown]
  - Pain [Recovered/Resolved with Sequelae]
  - Anxiety [Not Recovered/Not Resolved]
  - Anhedonia [Not Recovered/Not Resolved]
  - Paraesthesia [Recovered/Resolved with Sequelae]
  - Emotional distress [Not Recovered/Not Resolved]
  - Acute kidney injury [Recovered/Resolved with Sequelae]
  - Hypophosphataemia [Recovered/Resolved with Sequelae]
  - Stress fracture [Recovered/Resolved with Sequelae]

NARRATIVE: CASE EVENT DATE: 201810
